FAERS Safety Report 24699750 (Version 1)
Quarter: 2024Q4

REPORT INFORMATION
  Report Type: Report from Study
  Country: DE (occurrence: DE)
  Receive Date: 20241205
  Receipt Date: 20241205
  Transmission Date: 20250114
  Serious: Yes (Other)
  Sender: ROCHE
  Company Number: DE-ROCHE-10000142723

PATIENT

DRUGS (21)
  1. BEVACIZUMAB [Suspect]
     Active Substance: BEVACIZUMAB
     Indication: Brain neoplasm
     Route: 065
  2. ENTRECTINIB [Suspect]
     Active Substance: ENTRECTINIB
     Indication: Brain neoplasm
     Route: 065
  3. EVEROLIMUS [Suspect]
     Active Substance: EVEROLIMUS
     Indication: Brain neoplasm
     Route: 065
  4. ABEMACICLIB [Suspect]
     Active Substance: ABEMACICLIB
     Indication: Brain neoplasm
     Route: 065
  5. TEMSIROLIMUS [Suspect]
     Active Substance: TEMSIROLIMUS
     Indication: Brain neoplasm
     Route: 065
  6. DABRAFENIB\TRAMETINIB [Suspect]
     Active Substance: DABRAFENIB\TRAMETINIB
     Indication: Brain neoplasm
     Route: 065
  7. NIVOLUMAB [Suspect]
     Active Substance: NIVOLUMAB
     Indication: Brain neoplasm
     Route: 065
  8. LAROTRECTINIB [Suspect]
     Active Substance: LAROTRECTINIB
     Indication: Brain neoplasm
     Route: 065
  9. IVOSIDENIB [Suspect]
     Active Substance: IVOSIDENIB
     Indication: Brain neoplasm
     Route: 065
  10. OLAPARIB [Suspect]
     Active Substance: OLAPARIB
     Indication: Brain neoplasm
     Route: 065
  11. FUTIBATINIB [Suspect]
     Active Substance: FUTIBATINIB
     Indication: Brain neoplasm
     Route: 065
  12. SELUMETINIB [Suspect]
     Active Substance: SELUMETINIB
     Indication: Brain neoplasm
     Route: 065
  13. VORASIDENIB [Suspect]
     Active Substance: VORASIDENIB
     Indication: Brain neoplasm
     Route: 065
  14. ALPELISIB [Suspect]
     Active Substance: ALPELISIB
     Indication: Brain neoplasm
     Route: 065
  15. DASATINIB [Suspect]
     Active Substance: DASATINIB
     Indication: Brain neoplasm
     Route: 065
  16. ERDAFITINIB [Suspect]
     Active Substance: ERDAFITINIB
     Indication: Brain neoplasm
     Route: 065
  17. IMATINIB [Suspect]
     Active Substance: IMATINIB
     Indication: Brain neoplasm
     Route: 065
  18. OCTREOTIDE [Suspect]
     Active Substance: OCTREOTIDE
     Indication: Brain neoplasm
     Route: 065
  19. TAZEMETOSTAT [Suspect]
     Active Substance: TAZEMETOSTAT
     Indication: Brain neoplasm
     Route: 065
  20. TEPOTINIB [Suspect]
     Active Substance: TEPOTINIB
     Indication: Brain neoplasm
     Route: 065
  21. TRAMETINIB [Suspect]
     Active Substance: TRAMETINIB
     Indication: Brain neoplasm
     Route: 065

REACTIONS (8)
  - Cytopenia [Unknown]
  - Rash [Unknown]
  - Infection [Unknown]
  - Hepatic enzyme increased [Unknown]
  - Hyperglycaemia [Unknown]
  - Neurotoxicity [Unknown]
  - Musculoskeletal disorder [Unknown]
  - Adrenocortical insufficiency acute [Unknown]
